FAERS Safety Report 24663206 (Version 2)
Quarter: 2024Q4

REPORT INFORMATION
  Report Type: Spontaneous
  Country: US (occurrence: US)
  Receive Date: 20241126
  Receipt Date: 20241229
  Transmission Date: 20250114
  Serious: No
  Sender: ROCHE
  Company Number: US-ROCHE-10000134898

PATIENT
  Age: 55 Year
  Sex: Male

DRUGS (2)
  1. ALECENSA [Suspect]
     Active Substance: ALECTINIB HYDROCHLORIDE
     Indication: Lung neoplasm malignant
     Route: 065
     Dates: start: 202308
  2. LORBRENA [Concomitant]
     Active Substance: LORLATINIB

REACTIONS (10)
  - Blood cholesterol increased [Unknown]
  - Blood triglycerides [Unknown]
  - Visual impairment [Unknown]
  - Fatigue [Unknown]
  - Lipids increased [Unknown]
  - Mood altered [Unknown]
  - Irritability [Unknown]
  - Fear [Unknown]
  - Pruritus [Unknown]
  - Oedema [Unknown]
